FAERS Safety Report 23568923 (Version 1)
Quarter: 2024Q1

REPORT INFORMATION
  Report Type: Spontaneous
  Country: US (occurrence: US)
  Receive Date: 20240227
  Receipt Date: 20240227
  Transmission Date: 20240410
  Serious: No
  Sender: FDA-Public Use
  Company Number: US-ORG100014127-2023000801

PATIENT
  Age: 45 Year
  Sex: Female

DRUGS (3)
  1. METYRAPONE [Suspect]
     Active Substance: METYRAPONE
     Indication: Neuroendocrine tumour
  2. KETOCONAZOLE [Concomitant]
     Active Substance: KETOCONAZOLE
     Indication: Neuroendocrine tumour
  3. OCTREOTIDE [Concomitant]
     Active Substance: OCTREOTIDE\OCTREOTIDE ACETATE
     Indication: Neuroendocrine tumour

REACTIONS (1)
  - Off label use [Unknown]
